FAERS Safety Report 18046303 (Version 2)
Quarter: 2020Q3

REPORT INFORMATION
  Report Type: Spontaneous
  Country: US (occurrence: US)
  Receive Date: 20200721
  Receipt Date: 20200922
  Transmission Date: 20201103
  Serious: Yes (Other)
  Sender: FDA-Public Use
  Company Number: US-LUPIN PHARMACEUTICALS INC.-2020-03364

PATIENT
  Age: 51 Year
  Sex: Male

DRUGS (22)
  1. L?METHYLFOLATE [Suspect]
     Active Substance: LEVOMEFOLIC ACID
     Indication: MAJOR DEPRESSION
     Dosage: UNK
     Route: 065
  2. SUCCINYLCHOLINE [SUXAMETHONIUM CHLORIDE] [Concomitant]
     Active Substance: SUCCINYLCHOLINE
     Dosage: 200 MILLIGRAM
     Route: 065
  3. DESVENLAFAXINE. [Suspect]
     Active Substance: DESVENLAFAXINE
     Indication: MAJOR DEPRESSION
     Dosage: UNK
     Route: 065
  4. TESTOSTERONE. [Suspect]
     Active Substance: TESTOSTERONE
     Indication: MAJOR DEPRESSION
     Dosage: UNK
     Route: 065
  5. SUCCINYLCHOLINE [SUXAMETHONIUM CHLORIDE] [Concomitant]
     Active Substance: SUCCINYLCHOLINE
     Dosage: 120 MILLIGRAM
     Route: 065
  6. LISDEXAMFETAMINE [Concomitant]
     Active Substance: LISDEXAMFETAMINE
     Indication: MAJOR DEPRESSION
     Dosage: UNK
     Route: 065
  7. METHOHEXITAL [Concomitant]
     Active Substance: METHOHEXITAL
     Indication: ANAESTHESIA
     Dosage: 100 MILLIGRAM
     Route: 065
  8. BUPROPION. [Suspect]
     Active Substance: BUPROPION
     Indication: MAJOR DEPRESSION
     Dosage: UNK
     Route: 065
  9. DIVALPROEX [Suspect]
     Active Substance: DIVALPROEX SODIUM
     Indication: MAJOR DEPRESSION
     Dosage: UNK
     Route: 065
  10. NORTRIPTYLINE [Suspect]
     Active Substance: NORTRIPTYLINE
     Indication: MAJOR DEPRESSION
     Dosage: UNK
     Route: 065
  11. KETAMINE [Suspect]
     Active Substance: KETAMINE
     Indication: MAJOR DEPRESSION
     Dosage: UNK, ONE COURSE
     Route: 065
  12. METOPROLOL. [Concomitant]
     Active Substance: METOPROLOL
     Indication: PRODUCT USED FOR UNKNOWN INDICATION
     Dosage: UNK
     Route: 065
  13. MIRTAZAPINE. [Suspect]
     Active Substance: MIRTAZAPINE
     Indication: MAJOR DEPRESSION
     Dosage: UNK
     Route: 065
  14. ARIPIPRAZOLE. [Suspect]
     Active Substance: ARIPIPRAZOLE
     Indication: MAJOR DEPRESSION
     Dosage: UNK
     Route: 065
  15. DEXTROAMPHETAMINE. [Suspect]
     Active Substance: DEXTROAMPHETAMINE
     Indication: MAJOR DEPRESSION
     Dosage: UNK
     Route: 065
  16. SUCCINYLCHOLINE [SUXAMETHONIUM CHLORIDE] [Concomitant]
     Active Substance: SUCCINYLCHOLINE
     Indication: ANAESTHESIA
     Dosage: 100 MILLIGRAM
     Route: 065
  17. PROPOFOL. [Concomitant]
     Active Substance: PROPOFOL
     Indication: ANAESTHESIA
     Dosage: 50 MILLIGRAM
     Route: 065
  18. LEVOTHYROXINE. [Concomitant]
     Active Substance: LEVOTHYROXINE
     Indication: HYPERPARATHYROIDISM PRIMARY
     Dosage: UNK
     Route: 065
  19. ESCITALOPRAM [Suspect]
     Active Substance: ESCITALOPRAM OXALATE
     Indication: MAJOR DEPRESSION
     Dosage: UNK
     Route: 065
  20. DULOXETINE HYDROCHLORIDE. [Suspect]
     Active Substance: DULOXETINE HYDROCHLORIDE
     Indication: MAJOR DEPRESSION
     Dosage: UNK
     Route: 065
  21. LITHIUM. [Suspect]
     Active Substance: LITHIUM
     Indication: MAJOR DEPRESSION
     Dosage: UNK
     Route: 065
  22. BUSPIRONE [Suspect]
     Active Substance: BUSPIRONE HYDROCHLORIDE
     Indication: MAJOR DEPRESSION
     Dosage: UNK
     Route: 065

REACTIONS (1)
  - Drug ineffective [Unknown]
